FAERS Safety Report 14342314 (Version 1)
Quarter: 2017Q4

REPORT INFORMATION
  Report Type: Spontaneous
  Country: US (occurrence: US)
  Receive Date: 20171229
  Receipt Date: 20171229
  Transmission Date: 20180321
  Serious: Yes (Other)
  Sender: FDA-Public Use
  Company Number: None

PATIENT
  Sex: Female
  Weight: 58.06 kg

DRUGS (2)
  1. MIRENA [Suspect]
     Active Substance: LEVONORGESTREL
  2. VITAMINS [Concomitant]
     Active Substance: VITAMINS

REACTIONS (8)
  - Tremor [None]
  - Muscle spasms [None]
  - Crying [None]
  - Insomnia [None]
  - Suicidal ideation [None]
  - Depression [None]
  - Depressed mood [None]
  - Anxiety [None]

NARRATIVE: CASE EVENT DATE: 20170127
